FAERS Safety Report 4559090-8 (Version None)
Quarter: 2005Q1

REPORT INFORMATION
  Report Type: 
  Country: None (occurrence: None)
  Receive Date: 20050119
  Receipt Date: 20050110
  Transmission Date: 20050727
  Serious: Yes (Death, Hospitalization)
  Sender: FDA-Public Use
  Company Number: 2005EU000033

PATIENT
  Age: 12 Year
  Sex: Female

DRUGS (6)
  1. PROGRAF [Suspect]
     Indication: INTESTINAL TRANSPLANT
     Dosage: D
  2. PROGRAF [Suspect]
     Indication: LIVER TRANSPLANT
     Dosage: D
  3. PROGRAF [Suspect]
     Indication: PANCREAS TRANSPLANT
     Dosage: D
  4. PROGRAF [Suspect]
     Indication: RENAL TRANSPLANT
     Dosage: D
  5. VANCOMYCIN [Concomitant]
  6. METHYLPREDNISOLONE [Concomitant]

REACTIONS (15)
  - BACTERIAL INFECTION [None]
  - BRONCHOPNEUMONIA [None]
  - CHOLANGITIS [None]
  - CHOLELITHIASIS [None]
  - DRUG LEVEL INCREASED [None]
  - ENTEROCOCCAL INFECTION [None]
  - GASTRIC OUTLET OBSTRUCTION [None]
  - HAEMODIALYSIS [None]
  - INTESTINE TRANSPLANT REJECTION [None]
  - PANCREATITIS [None]
  - POSTOPERATIVE INFECTION [None]
  - PSEUDOMONAS INFECTION [None]
  - RENAL FAILURE [None]
  - SEPSIS [None]
  - WOUND INFECTION [None]
